FAERS Safety Report 6051663-9 (Version None)
Quarter: 2009Q1

REPORT INFORMATION
  Report Type: 
  Country: None (occurrence: None)
  Receive Date: 20090126
  Receipt Date: 20090115
  Transmission Date: 20090719
  Serious: No
  Sender: FDA-Public Use
  Company Number: DE-GENENTECH-273242

PATIENT
  Age: 66 Year
  Sex: Male

DRUGS (2)
  1. MABTHERA [Suspect]
     Indication: CHRONIC LYMPHOCYTIC LEUKAEMIA
     Dosage: 740 MG, UNK
     Route: 042
  2. PREMEDICATION DRUGS [Concomitant]
     Indication: PREMEDICATION

REACTIONS (4)
  - CHILLS [None]
  - MUSCLE SPASMS [None]
  - NAUSEA [None]
  - PYREXIA [None]
